FAERS Safety Report 4333106-6 (Version None)
Quarter: 2004Q2

REPORT INFORMATION
  Report Type: 
  Country: None (occurrence: None)
  Receive Date: 20040405
  Receipt Date: 20040405
  Transmission Date: 20050107
  Serious: Yes (Hospitalization)
  Sender: FDA-Public Use
  Company Number: None

PATIENT
  Age: 43 Year
  Sex: Male
  Weight: 49.8957 kg

DRUGS (13)
  1. PIPERACILLIN/TAZOBACTAM [Suspect]
     Indication: PNEUMONIA ASPIRATION
     Dosage: 3.375 G Q6H IV
     Route: 042
     Dates: start: 20040116, end: 20040119
  2. METRONIDAZOLE [Concomitant]
  3. M.V.I. [Concomitant]
  4. THIAMINE [Concomitant]
  5. FOLATE [Concomitant]
  6. RANITIDINE [Concomitant]
  7. LACTULOSE [Concomitant]
  8. AZITHROMYCIN [Concomitant]
  9. FENTANYL [Concomitant]
  10. HALOPERIDOL [Concomitant]
  11. LORAZEPAM [Concomitant]
  12. ALBUTEROL [Concomitant]
  13. DOPAMINE HCL [Concomitant]

REACTIONS (6)
  - HEPATORENAL SYNDROME [None]
  - HYPOTENSION [None]
  - INFECTION [None]
  - NEPHRITIS INTERSTITIAL [None]
  - PNEUMONIA ASPIRATION [None]
  - RENAL FAILURE [None]
